FAERS Safety Report 16111929 (Version 1)
Quarter: 2019Q2

REPORT INFORMATION
  Report Type: Spontaneous
  Country: US (occurrence: US)
  Receive Date: 20190322
  Receipt Date: 20190322
  Transmission Date: 20190711
  Serious: No
  Sender: FDA-Public Use
  Company Number: None

PATIENT
  Age: 10 Year
  Sex: Female
  Weight: 31.5 kg

DRUGS (1)
  1. AMOXICILLIN. [Suspect]
     Active Substance: AMOXICILLIN
     Indication: BRONCHITIS
     Dosage: ?          QUANTITY:300 TABLESPOON(S);?
     Route: 048

REACTIONS (2)
  - Product dispensing error [None]
  - Product communication issue [None]

NARRATIVE: CASE EVENT DATE: 20190322
